FAERS Safety Report 8131957-3 (Version None)
Quarter: 2012Q1

REPORT INFORMATION
  Report Type: 
  Country: None (occurrence: None)
  Receive Date: 20120213
  Receipt Date: 20120206
  Transmission Date: 20120608
  Serious: No
  Sender: FDA-Public Use
  Company Number: US-BAYER-2012-013023

PATIENT
  Sex: Female

DRUGS (1)
  1. ALEVE (CAPLET) [Suspect]
     Indication: DYSMENORRHOEA
     Dosage: DAILY DOSE 1100 MG
     Route: 048

REACTIONS (5)
  - FATIGUE [None]
  - POLLAKIURIA [None]
  - DYSMENORRHOEA [None]
  - INSOMNIA [None]
  - DEHYDRATION [None]
